FAERS Safety Report 7626970-6 (Version None)
Quarter: 2011Q3

REPORT INFORMATION
  Report Type: 
  Country: None (occurrence: None)
  Receive Date: 20110721
  Receipt Date: 20110707
  Transmission Date: 20111222
  Serious: Yes (Hospitalization)
  Sender: FDA-Public Use
  Company Number: BR-CUBIST-2011S1000465

PATIENT
  Sex: Male

DRUGS (3)
  1. CUBICIN [Suspect]
     Route: 065
  2. CUBICIN [Suspect]
     Indication: PRODUCT USED FOR UNKNOWN INDICATION
     Route: 065
  3. CUBICIN [Suspect]
     Route: 065

REACTIONS (2)
  - ENDOCARDITIS STAPHYLOCOCCAL [None]
  - SEPTIC EMBOLUS [None]
